FAERS Safety Report 4889316-2 (Version None)
Quarter: 2006Q1

REPORT INFORMATION
  Report Type: 
  Country: None (occurrence: None)
  Receive Date: 20060120
  Receipt Date: 20060109
  Transmission Date: 20060701
  Serious: Yes (Disabling)
  Sender: FDA-Public Use
  Company Number: 2005090005

PATIENT
  Age: 52 Year
  Sex: Female

DRUGS (1)
  1. ASTELIN [Suspect]
     Indication: RHINITIS
     Dosage: 2 SPRAYS (274 MCG), BID, IN
     Route: 055
     Dates: start: 20050908, end: 20050823

REACTIONS (2)
  - AGEUSIA [None]
  - ANOSMIA [None]
